FAERS Safety Report 24152548 (Version 1)
Quarter: 2024Q3

REPORT INFORMATION
  Report Type: Spontaneous
  Country: US (occurrence: US)
  Receive Date: 20240730
  Receipt Date: 20240730
  Transmission Date: 20241016
  Serious: Yes (Other)
  Sender: INTRA-CELLULAR THERAPIES
  Company Number: US-INTRA-CELLULAR THERAPIES, INC.-2024ICT01193

PATIENT

DRUGS (3)
  1. CAPLYTA [Suspect]
     Active Substance: LUMATEPERONE
  2. CANNABIS SATIVA SUBSP. INDICA TOP [Suspect]
     Active Substance: CANNABIS SATIVA SUBSP. INDICA TOP
  3. ALCOHOL [Suspect]
     Active Substance: ALCOHOL

REACTIONS (1)
  - Pseudostroke [Unknown]
